FAERS Safety Report 24297989 (Version 1)
Quarter: 2024Q3

REPORT INFORMATION
  Report Type: Spontaneous
  Country: TR (occurrence: TR)
  Receive Date: 20240909
  Receipt Date: 20240909
  Transmission Date: 20241017
  Serious: Yes (Death, Other)
  Sender: PFIZER
  Company Number: TR-PFIZER INC-202400249928

PATIENT
  Age: 75 Year
  Sex: Female

DRUGS (2)
  1. LORLATINIB [Suspect]
     Active Substance: LORLATINIB
     Indication: Non-small cell lung cancer stage IV
     Dosage: UNK
     Dates: start: 202301
  2. LORLATINIB [Suspect]
     Active Substance: LORLATINIB
     Dosage: DOSE REDUCTION

REACTIONS (9)
  - Death [Fatal]
  - Hypertriglyceridaemia [Recovered/Resolved]
  - Cerebral infarction [Unknown]
  - Hepatotoxicity [Unknown]
  - Pneumonia viral [Unknown]
  - Diarrhoea [Unknown]
  - Liver function test increased [Unknown]
  - Oedema peripheral [Unknown]
  - COVID-19 [Unknown]

NARRATIVE: CASE EVENT DATE: 20230801
